FAERS Safety Report 12553367 (Version 1)
Quarter: 2016Q3

REPORT INFORMATION
  Report Type: Spontaneous
  Country: US (occurrence: US)
  Receive Date: 20160713
  Receipt Date: 20160713
  Transmission Date: 20161109
  Serious: Yes (Other)
  Sender: FDA-Public Use
  Company Number: US-BAYER-2016-136033

PATIENT
  Age: 46 Year
  Sex: Female

DRUGS (1)
  1. MIRENA [Suspect]
     Active Substance: LEVONORGESTREL
     Indication: CONTRACEPTION
     Dosage: 20 MCG/24HR, CONT
     Route: 015
     Dates: start: 2012

REACTIONS (7)
  - Fatigue [Not Recovered/Not Resolved]
  - Abdominal pain [Not Recovered/Not Resolved]
  - Genital haemorrhage [Not Recovered/Not Resolved]
  - Vaginal haemorrhage [Not Recovered/Not Resolved]
  - Feeling abnormal [Not Recovered/Not Resolved]
  - Dizziness [Not Recovered/Not Resolved]
  - Menopausal symptoms [Not Recovered/Not Resolved]
